FAERS Safety Report 7388008-8 (Version None)
Quarter: 2011Q2

REPORT INFORMATION
  Report Type: 
  Country: None (occurrence: None)
  Receive Date: 20110401
  Receipt Date: 20110323
  Transmission Date: 20111010
  Serious: Yes (Hospitalization, Other)
  Sender: FDA-Public Use
  Company Number: US-ELI_LILLY_AND_COMPANY-US201103007480

PATIENT
  Sex: Male

DRUGS (5)
  1. HUMULIN 70/30 [Suspect]
     Dosage: 45 U, EACH EVENING
     Dates: start: 19960101
  2. HUMULIN 70/30 [Suspect]
     Dosage: 65 U, EACH MORNING
     Dates: start: 19960101
  3. HUMULIN 70/30 [Suspect]
     Dosage: 45 U, EACH EVENING
     Dates: start: 19960101
  4. PLAVIX [Concomitant]
     Dosage: UNK
  5. HUMULIN 70/30 [Suspect]
     Indication: TYPE 2 DIABETES MELLITUS
     Dosage: 65 U, EACH MORNING
     Dates: start: 19960101

REACTIONS (9)
  - MUSCLE SPASMS [None]
  - DENTAL IMPLANTATION [None]
  - THROMBOSIS [None]
  - CARDIAC OPERATION [None]
  - MALAISE [None]
  - MOBILITY DECREASED [None]
  - MUSCULOSKELETAL DISORDER [None]
  - PAIN [None]
  - MUSCULOSKELETAL STIFFNESS [None]
